FAERS Safety Report 10188143 (Version 1)
Quarter: 2014Q2

REPORT INFORMATION
  Report Type: Spontaneous
  Country: BR (occurrence: BR)
  Receive Date: 20140522
  Receipt Date: 20140522
  Transmission Date: 20141212
  Serious: Yes (Other)
  Sender: FDA-Public Use
  Company Number: BR-PFIZER INC-2014134495

PATIENT
  Age: 51 Year
  Sex: Female
  Weight: 65 kg

DRUGS (2)
  1. XALATAN [Suspect]
     Indication: GLAUCOMA
     Dosage: 1 DROP IN EACH EYE, 1X/DAY
     Route: 047
     Dates: start: 2011, end: 2011
  2. VIGADEXA [Concomitant]
     Indication: INFECTION PROPHYLAXIS
     Dosage: 1 DROP IN EACH EYE 1X AT NIGHT

REACTIONS (2)
  - Glaucoma [Unknown]
  - Cataract [Unknown]
